FAERS Safety Report 5787185-X (Version None)
Quarter: 2008Q2

REPORT INFORMATION
  Report Type: 
  Country: None (occurrence: None)
  Receive Date: 20080625
  Receipt Date: 20080613
  Transmission Date: 20081010
  Serious: Yes (Death, Life-Threatening, Hospitalization)
  Sender: FDA-Public Use
  Company Number: CH-WYE-G01575308

PATIENT
  Age: 67 Year
  Sex: Male

DRUGS (16)
  1. EFFEXOR [Interacting]
     Route: 048
     Dates: end: 20080131
  2. DUSPATALIN - SLOW RELEASE [Interacting]
     Route: 048
     Dates: start: 20050801, end: 20080131
  3. ATORVASTATIN CALCIUM [Concomitant]
     Route: 048
     Dates: end: 20080131
  4. FLORINEF [Concomitant]
     Dosage: 0.1 TO 0.2 MG PER DAY
     Route: 048
     Dates: end: 20080131
  5. PANTOPRAZOLE SODIUM [Concomitant]
     Route: 048
     Dates: end: 20080131
  6. BECOZYME FORTE [Concomitant]
     Dates: end: 20080131
  7. PIROXICAM [Concomitant]
     Route: 048
     Dates: start: 20070625, end: 20080131
  8. MAGNESIUM [Concomitant]
     Dosage: 1 BOTTLE PER DAY
     Route: 048
     Dates: start: 20071025, end: 20080118
  9. MAGNESIUM [Concomitant]
     Dosage: 2 BOTTLES PER DAY
     Route: 048
     Dates: start: 20080119, end: 20080131
  10. CLINDAMYCIN HCL [Suspect]
     Route: 048
     Dates: start: 20080125, end: 20080131
  11. TRANSIPEG [Concomitant]
     Dosage: 1 BOTTLE PER DAY
     Route: 048
     Dates: start: 20060502, end: 20080131
  12. PARAFFIN [Concomitant]
     Route: 048
     Dates: start: 20050801, end: 20080131
  13. CLOZAPINE [Suspect]
     Dosage: 200 TO 400 MG PER DAY
     Route: 048
     Dates: start: 19950501, end: 20061019
  14. CLOZAPINE [Suspect]
     Route: 048
     Dates: start: 20061020, end: 20080113
  15. CLOZAPINE [Suspect]
     Route: 048
     Dates: start: 20080114, end: 20080131
  16. SOLMUCOL [Concomitant]
     Route: 048
     Dates: end: 20080131

REACTIONS (31)
  - AORTIC DILATATION [None]
  - ARTERIOSCLEROSIS [None]
  - ASPIRATION [None]
  - ASTHENIA [None]
  - BENIGN PROSTATIC HYPERPLASIA [None]
  - BLOOD PRESSURE SYSTOLIC DECREASED [None]
  - CARDIAC ARREST [None]
  - CARDIAC FAILURE [None]
  - CARDIAC HYPERTROPHY [None]
  - CHOLELITHIASIS [None]
  - DIZZINESS [None]
  - DRUG INTERACTION [None]
  - DYSPNOEA [None]
  - EMPHYSEMA [None]
  - FURUNCLE [None]
  - GASTRITIS [None]
  - GENERAL PHYSICAL HEALTH DETERIORATION [None]
  - GOITRE [None]
  - HYDROCELE [None]
  - HYPERTENSION [None]
  - HYPOTENSION [None]
  - ILEUS PARALYTIC [None]
  - LOSS OF CONSCIOUSNESS [None]
  - OSTEOPOROSIS [None]
  - PAIN IN EXTREMITY [None]
  - PULMONARY EMBOLISM [None]
  - RENAL CYST [None]
  - RENAL FAILURE ACUTE [None]
  - RIB FRACTURE [None]
  - SUBILEUS [None]
  - WEIGHT INCREASED [None]
